FAERS Safety Report 17767682 (Version 1)
Quarter: 2020Q2

REPORT INFORMATION
  Report Type: Report from Study
  Country: CA (occurrence: CA)
  Receive Date: 20200511
  Receipt Date: 20200511
  Transmission Date: 20200714
  Serious: Yes (Other)
  Sender: FDA-Public Use
  Company Number: NVSC2020CA123554

PATIENT
  Age: 45 Year
  Sex: Female

DRUGS (9)
  1. PANTOPRAZOLE SODIUM. [Suspect]
     Active Substance: PANTOPRAZOLE SODIUM
     Indication: SECONDARY PROGRESSIVE MULTIPLE SCLEROSIS
     Dosage: 40 MG, BID
     Route: 048
  2. TECFIDERA [Concomitant]
     Active Substance: DIMETHYL FUMARATE
     Indication: PRODUCT USED FOR UNKNOWN INDICATION
     Dosage: 240 MG, BID
     Route: 065
     Dates: start: 2013
  3. RIZATRIPTAN BENZOATE. [Suspect]
     Active Substance: RIZATRIPTAN BENZOATE
     Indication: SECONDARY PROGRESSIVE MULTIPLE SCLEROSIS
     Dosage: 10 MG, PRN
     Route: 048
  4. CLONAZEPAM. [Suspect]
     Active Substance: CLONAZEPAM
     Indication: SECONDARY PROGRESSIVE MULTIPLE SCLEROSIS
     Dosage: 0.5 MG, PRN
     Route: 048
  5. IMOVANE [Concomitant]
     Active Substance: ZOPICLONE
     Indication: PRODUCT USED FOR UNKNOWN INDICATION
     Dosage: 5 MG, QD (PM)
     Route: 065
  6. CITALOPRAM [Suspect]
     Active Substance: CITALOPRAM HYDROBROMIDE
     Indication: SECONDARY PROGRESSIVE MULTIPLE SCLEROSIS
     Dosage: 40 MG, QD
     Route: 048
  7. VITAMIN D [Concomitant]
     Active Substance: VITAMIN D NOS
     Indication: PRODUCT USED FOR UNKNOWN INDICATION
     Dosage: 4 DF (1000 IU), QD
     Route: 065
  8. FAMPYRA [Concomitant]
     Active Substance: DALFAMPRIDINE
     Indication: PRODUCT USED FOR UNKNOWN INDICATION
     Dosage: 10 MG, BID
     Route: 065
  9. VITAMIN D3 [Concomitant]
     Active Substance: CHOLECALCIFEROL
     Indication: PRODUCT USED FOR UNKNOWN INDICATION
     Dosage: 4000 IU
     Route: 065

REACTIONS (30)
  - Migraine [Unknown]
  - Incontinence [Unknown]
  - Balance disorder [Recovering/Resolving]
  - Back pain [Unknown]
  - Depressed level of consciousness [Unknown]
  - Limb discomfort [Unknown]
  - Muscle tightness [Unknown]
  - Peroneal nerve palsy [Unknown]
  - Brain stem syndrome [Unknown]
  - Bladder disorder [Not Recovered/Not Resolved]
  - Constipation [Unknown]
  - Muscular weakness [Recovering/Resolving]
  - Dysarthria [Unknown]
  - Secondary progressive multiple sclerosis [Not Recovered/Not Resolved]
  - Choking [Unknown]
  - Fall [Unknown]
  - Movement disorder [Unknown]
  - Fatigue [Unknown]
  - Blood bilirubin increased [Unknown]
  - Condition aggravated [Not Recovered/Not Resolved]
  - Expanded disability status scale score increased [Unknown]
  - Throat clearing [Unknown]
  - Hypertonic bladder [Unknown]
  - Insomnia [Unknown]
  - Asthenia [Unknown]
  - Product use in unapproved indication [Unknown]
  - Electrocardiogram QT prolonged [Unknown]
  - Memory impairment [Unknown]
  - Hypertonia [Unknown]
  - Lymphocyte count decreased [Unknown]

NARRATIVE: CASE EVENT DATE: 201410
